FAERS Safety Report 17763757 (Version 1)
Quarter: 2020Q2

REPORT INFORMATION
  Report Type: Spontaneous
  Country: FR (occurrence: FR)
  Receive Date: 20200510
  Receipt Date: 20200510
  Transmission Date: 20200714
  Serious: Yes (Death)
  Sender: FDA-Public Use
  Company Number: FR-CADILA HEALTHCARE LIMITED-FR-ZYDUS-026373

PATIENT

DRUGS (55)
  1. UVESTEROL D [Suspect]
     Active Substance: ERGOCALCIFEROL
     Indication: FOETAL EXPOSURE DURING PREGNANCY
     Dosage: 1500 U/L, UNK ()
     Route: 064
  2. UVESTEROL D [Suspect]
     Active Substance: ERGOCALCIFEROL
     Indication: PROPHYLAXIS
     Dosage: ()
     Route: 048
  3. UVESTEROL D [Suspect]
     Active Substance: ERGOCALCIFEROL
     Dosage: MATERNAL DOSE: 5000 U/I ()
     Route: 064
  4. SERETIDE [Suspect]
     Active Substance: FLUTICASONE PROPIONATE\SALMETEROL XINAFOATE
     Indication: FOETAL EXPOSURE DURING PREGNANCY
     Dosage: MATERNAL DOSE: UNKNOWN) ()
     Route: 064
     Dates: start: 20140825
  5. IMODIUM [Concomitant]
     Active Substance: LOPERAMIDE HYDROCHLORIDE
     Indication: DIARRHOEA
     Dosage: ()
     Route: 064
  6. IMODIUM [Concomitant]
     Active Substance: LOPERAMIDE HYDROCHLORIDE
     Dosage: ()
     Dates: start: 201412, end: 201412
  7. ACETYLCYSTEINE BIOGARAN [Concomitant]
     Active Substance: ACETYLCYSTEINE
     Indication: BRONCHITIS
     Dosage: ()
     Route: 064
     Dates: start: 20140825
  8. SPASFON LYOC [Concomitant]
     Active Substance: PHLOROGLUCINOL
     Indication: DYSPEPSIA
     Dosage: ()
     Route: 064
  9. PARACETAMOL ARROW [Concomitant]
     Active Substance: ACETAMINOPHEN
     Indication: PRODUCT USED FOR UNKNOWN INDICATION
     Dosage: UNK ()
     Route: 065
     Dates: start: 201402
  10. PIVALONE [Concomitant]
     Indication: RHINITIS
     Route: 064
  11. MACROGOL 4000 [Suspect]
     Active Substance: POLYETHYLENE GLYCOL 4000
     Indication: PRODUCT USED FOR UNKNOWN INDICATION
     Dosage: MATERNAL DOSE: UNKNOWN) ()
     Route: 064
     Dates: start: 20140716, end: 201409
  12. AMOXYCILLIN ALMUS [Suspect]
     Active Substance: AMOXICILLIN
     Dosage: MATERNAL DOSE: UNKNOWN) ()
     Route: 064
     Dates: start: 201412
  13. SERETIDE [Concomitant]
     Active Substance: FLUTICASONE PROPIONATE\SALMETEROL XINAFOATE
     Indication: BRONCHITIS
     Route: 065
  14. VOGALENE [Concomitant]
     Active Substance: METOPIMAZINE
     Dosage: ()
     Route: 064
     Dates: start: 201406, end: 201409
  15. NECYRANE [Concomitant]
     Active Substance: RITIOMETAN
     Indication: NASOPHARYNGITIS
     Dosage: ()
     Route: 064
     Dates: start: 20140825
  16. KETOPROFENE [Suspect]
     Active Substance: KETOPROFEN
     Indication: FOETAL EXPOSURE DURING PREGNANCY
     Dosage: 200 MILLIGRAM,(MATERNAL DOSE: UNKNOWN),(INTERVAL :1 DAYS)
     Route: 064
     Dates: start: 201401, end: 201404
  17. VOGALENE [Concomitant]
     Active Substance: METOPIMAZINE
     Dosage: ()
     Route: 064
     Dates: start: 201409
  18. AMOXICILLINE [Concomitant]
     Active Substance: AMOXICILLIN
     Indication: ASTHMA
     Dosage: ()
     Route: 064
  19. ACETYLCYSTEINE BIOGARAN [Concomitant]
     Active Substance: ACETYLCYSTEINE
     Indication: BRONCHITIS
     Dosage: MATERNAL DOSE: UNKNOWN) ()
     Route: 064
     Dates: start: 20140825
  20. OMEPRAZOLE. [Concomitant]
     Active Substance: OMEPRAZOLE
     Indication: GASTROOESOPHAGEAL REFLUX DISEASE
     Dosage: ()
     Route: 064
  21. OMEPRAZOLE. [Suspect]
     Active Substance: OMEPRAZOLE
     Indication: FOETAL EXPOSURE DURING PREGNANCY
     Dosage: (MATERNAL DOSE: UNKNOWN) ()
     Route: 064
     Dates: start: 20140920
  22. MACROGOL 4000 [Suspect]
     Active Substance: POLYETHYLENE GLYCOL 4000
     Indication: FOETAL EXPOSURE DURING PREGNANCY
     Dosage: MATERNAL DOSE: UNKNOWN) ()
     Route: 064
     Dates: start: 201406
  23. SPASFON LYOC [Suspect]
     Active Substance: PHLOROGLUCINOL
     Indication: DYSPEPSIA
     Dosage: (MATERNAL DOSE: UNKNOWN) ()
     Route: 064
     Dates: start: 201406, end: 201407
  24. AMOXYCILLIN ALMUS [Suspect]
     Active Substance: AMOXICILLIN
     Indication: FOETAL EXPOSURE DURING PREGNANCY
     Dosage: MATERNAL DOSE: UNKNOWN) ()
     Route: 064
     Dates: start: 20140827
  25. VOGALENE [Suspect]
     Active Substance: METOPIMAZINE
     Indication: PRODUCT USED FOR UNKNOWN INDICATION
     Dosage: (MATERNAL DOSE: UNKNOWN) ()
     Route: 064
     Dates: start: 20140920, end: 201709
  26. VOGALENE [Suspect]
     Active Substance: METOPIMAZINE
     Indication: FOETAL EXPOSURE DURING PREGNANCY
     Dosage: (MATERNAL DOSE: UNKNOWN) ()
     Route: 064
     Dates: start: 201406
  27. IMODIUM [Suspect]
     Active Substance: LOPERAMIDE HYDROCHLORIDE
     Indication: FOETAL EXPOSURE DURING PREGNANCY
     Dosage: MATERNAL DOSE: UNKNOWN) FOR 5 DAYS ()
     Route: 064
     Dates: start: 20141212
  28. BROMAZEPAM ARROW [Suspect]
     Active Substance: BROMAZEPAM
     Indication: FOETAL EXPOSURE DURING PREGNANCY
     Dosage: ONE AND A HALF DOSAGE PER DAY (),(INTERVAL :1 DAYS)
     Route: 064
  29. PROFENID [Concomitant]
     Active Substance: KETOPROFEN
     Dosage: ()
     Route: 064
  30. SPASFON LYOC [Suspect]
     Active Substance: PHLOROGLUCINOL
     Dates: start: 201406, end: 201407
  31. PIVALONE UNSPECIFIED [Suspect]
     Active Substance: TIXOCORTOL PIVALATE
     Indication: FOETAL EXPOSURE DURING PREGNANCY
     Dosage: MATERNAL DOSE: UNKNOWN) ()
     Route: 064
     Dates: start: 20141212
  32. NECYRANE [Suspect]
     Active Substance: RITIOMETAN
     Indication: FOETAL EXPOSURE DURING PREGNANCY
     Dosage: MATERNAL DOSE: UNKNOWN) ()
     Route: 064
     Dates: start: 20140825
  33. KLIPAL CODEINE [Concomitant]
     Active Substance: ACETAMINOPHEN\CODEINE PHOSPHATE
     Indication: SPINAL PAIN
     Dosage: (MATERNAL DOSE: UNKNOWN) ()
     Route: 064
     Dates: start: 20140203, end: 20150104
  34. ANAFRANIL [Concomitant]
     Active Substance: CLOMIPRAMINE HYDROCHLORIDE
     Dosage: (INTERVAL :1 DAYS)
     Route: 064
  35. KLIPAL CODEINE [Suspect]
     Active Substance: ACETAMINOPHEN\CODEINE PHOSPHATE
     Indication: FOETAL EXPOSURE DURING PREGNANCY
     Dosage: (MATERNAL DOSE: UNKNOWN) ()
     Route: 064
     Dates: start: 20140203, end: 20150104
  36. SPASFON LYOC [Suspect]
     Active Substance: PHLOROGLUCINOL
     Indication: FOETAL EXPOSURE DURING PREGNANCY
     Dosage: (MATERNAL DOSE: UNKNOWN) ()
     Route: 064
     Dates: start: 201406, end: 201407
  37. ANAFRANIL [Suspect]
     Active Substance: CLOMIPRAMINE HYDROCHLORIDE
     Indication: FOETAL EXPOSURE DURING PREGNANCY
     Dosage: 2 DOSAGE FORM,2 DF, QD,(INTERVAL :1 DAYS)
     Route: 065
  38. PROFENID [Concomitant]
     Active Substance: KETOPROFEN
     Indication: SPINAL PAIN
     Dosage: 200 MILLIGRAM,200 MG,(INTERVAL :1 DAYS)
     Dates: start: 201401, end: 201404
  39. BROMAZEPAM [Concomitant]
     Active Substance: BROMAZEPAM
     Indication: ANXIETY
     Dosage: ()
     Route: 064
  40. SERETIDE [Concomitant]
     Active Substance: FLUTICASONE PROPIONATE\SALMETEROL XINAFOATE
     Indication: FOETAL EXPOSURE DURING PREGNANCY
     Dosage: MATERNAL DOSE: UNKNOWN) ()
     Route: 065
     Dates: start: 20140825
  41. IMODIUM [Concomitant]
     Active Substance: LOPERAMIDE HYDROCHLORIDE
     Dosage: ()
     Route: 064
  42. PIVALONE [Concomitant]
     Indication: RHINITIS
     Dosage: ()
     Route: 064
  43. PARACETAMOL ARROW [Concomitant]
     Active Substance: ACETAMINOPHEN
     Dosage: ()
     Dates: start: 2015
  44. FUNGIZONE [Concomitant]
     Active Substance: AMPHOTERICIN B
     Indication: FUNGAL INFECTION
     Dosage: .5 MILLILITER,0.5 ML, FOR 15 DAYS,(INTERVAL :1 DAYS)
     Route: 065
     Dates: start: 20150126
  45. KETOPROFENE [Concomitant]
     Active Substance: KETOPROFEN
     Indication: SPINAL PAIN
     Route: 064
  46. BI-PROFENID [Concomitant]
     Active Substance: KETOPROFEN
     Indication: FOETAL EXPOSURE DURING PREGNANCY
     Dosage: (MATERNAL DOSE: UNKNOWN) ()
     Route: 064
  47. CARBOCISTEINE [Suspect]
     Active Substance: CARBOCYSTEINE
     Indication: FOETAL EXPOSURE DURING PREGNANCY
     Dosage: MATERNAL DOSE: UNKNOWN) 5 PERCENT ()
     Route: 064
     Dates: start: 20141212, end: 20141216
  48. KETOPROFENE [Suspect]
     Active Substance: KETOPROFEN
     Indication: FOETAL EXPOSURE DURING PREGNANCY
     Dosage: (MATERNAL DOSE: UNKNOWN) ()
     Route: 064
  49. SERETIDE [Concomitant]
     Active Substance: FLUTICASONE PROPIONATE\SALMETEROL XINAFOATE
     Indication: FOETAL EXPOSURE DURING PREGNANCY
     Dosage: MATERNAL DOSE: UNKNOWN) ()
     Route: 065
     Dates: start: 20140825
  50. VOGALENE [Concomitant]
     Active Substance: METOPIMAZINE
     Dosage: ()
     Dates: start: 201409
  51. ANAFRANIL [Concomitant]
     Active Substance: CLOMIPRAMINE HYDROCHLORIDE
     Indication: DEPRESSION
     Dosage: (INTERVAL :1 DAYS)
  52. VOGALENE [Suspect]
     Active Substance: METOPIMAZINE
     Indication: NAUSEA
     Dosage: ()
     Route: 064
     Dates: start: 201406, end: 201409
  53. NECYRANE [Concomitant]
     Active Substance: RITIOMETAN
     Indication: NASOPHARYNGITIS
     Dosage: ()
     Route: 064
     Dates: start: 20140825
  54. SPASFON LYOC [Concomitant]
     Active Substance: PHLOROGLUCINOL
     Dosage: ()
     Dates: start: 201406, end: 201407
  55. CARBOCISTEINE [Concomitant]
     Active Substance: CARBOCYSTEINE
     Indication: BRONCHITIS
     Dosage: ()
     Route: 064
     Dates: start: 20141212, end: 20141216

REACTIONS (5)
  - Death [Fatal]
  - Fungal infection [Unknown]
  - Foetal exposure during pregnancy [Unknown]
  - Premature baby [Recovered/Resolved]
  - Foetal arrhythmia [Unknown]

NARRATIVE: CASE EVENT DATE: 20150105
